FAERS Safety Report 12682155 (Version 2)
Quarter: 2016Q3

REPORT INFORMATION
  Report Type: Spontaneous
  Country: SI (occurrence: SI)
  Receive Date: 20160824
  Receipt Date: 20160906
  Transmission Date: 20161109
  Serious: Yes (Other)
  Sender: FDA-Public Use
  Company Number: SI-BAYER-2016-159309

PATIENT
  Sex: Female

DRUGS (1)
  1. MIRENA [Suspect]
     Active Substance: LEVONORGESTREL
     Dosage: 20 MCG/24HR, CONT
     Route: 015
     Dates: start: 201506, end: 20160303

REACTIONS (17)
  - Upper airway obstruction [None]
  - Paraesthesia [None]
  - Hormone level abnormal [None]
  - Throat irritation [None]
  - Oropharyngeal pain [None]
  - Cyst [None]
  - Depression [None]
  - Febrile infection [None]
  - Oropharyngeal pain [Recovered/Resolved]
  - Abdominal pain lower [None]
  - Anxiety [Not Recovered/Not Resolved]
  - Panic attack [None]
  - Dizziness [None]
  - Chest pain [Not Recovered/Not Resolved]
  - Pyrexia [Recovered/Resolved]
  - Mood altered [None]
  - Chest pain [None]

NARRATIVE: CASE EVENT DATE: 201506
